FAERS Safety Report 14587266 (Version 1)
Quarter: 2018Q1

REPORT INFORMATION
  Report Type: Spontaneous
  Country: US (occurrence: US)
  Receive Date: 20180228
  Receipt Date: 20180228
  Transmission Date: 20180509
  Serious: No
  Sender: FDA-Public Use
  Company Number: None

PATIENT
  Sex: Female
  Weight: 81 kg

DRUGS (4)
  1. VICAPROFEN [Concomitant]
  2. ADVIL [Concomitant]
     Active Substance: IBUPROFEN
  3. LEVAQUIN [Suspect]
     Active Substance: LEVOFLOXACIN
     Indication: POST PROCEDURAL INFECTION
     Dosage: ?          QUANTITY:1 TABLET(S);?
     Route: 048
  4. ASPIRIN. [Concomitant]
     Active Substance: ASPIRIN

REACTIONS (13)
  - Visual impairment [None]
  - Confusional state [None]
  - Malaise [None]
  - Muscle atrophy [None]
  - Fall [None]
  - Fine motor skill dysfunction [None]
  - Headache [None]
  - Polydipsia [None]
  - Muscle operation [None]
  - Pain [None]
  - Retinal detachment [None]
  - Encephalopathy [None]
  - Sensory disturbance [None]
